FAERS Safety Report 16112281 (Version 1)
Quarter: 2019Q2

REPORT INFORMATION
  Report Type: Spontaneous
  Country: US (occurrence: US)
  Receive Date: 20190324
  Receipt Date: 20190324
  Transmission Date: 20190711
  Serious: No
  Sender: FDA-Public Use
  Company Number: None

PATIENT
  Sex: Female
  Weight: 72 kg

DRUGS (5)
  1. MAVYRET [Suspect]
     Active Substance: GLECAPREVIR\PIBRENTASVIR
     Indication: HEPATITIS C
     Route: 048
     Dates: start: 20180901, end: 20181201
  2. VITAMIN D NOS [Concomitant]
     Active Substance: VITAMIN D NOS
  3. VITAMIN K [Concomitant]
     Active Substance: PHYTONADIONE
  4. ANTIBIOTICS [Concomitant]
     Active Substance: UNSPECIFIED INGREDIENT
  5. ASPIRIN. [Concomitant]
     Active Substance: ASPIRIN

REACTIONS (1)
  - Alopecia [None]
